FAERS Safety Report 17850269 (Version 1)
Quarter: 2020Q2

REPORT INFORMATION
  Report Type: Spontaneous
  Country: US (occurrence: US)
  Receive Date: 20200602
  Receipt Date: 20200602
  Transmission Date: 20200714
  Serious: No
  Sender: FDA-Public Use
  Company Number: None

PATIENT
  Age: 56 Year
  Sex: Female
  Weight: 148.5 kg

DRUGS (21)
  1. ATENOLOL. [Concomitant]
     Active Substance: ATENOLOL
  2. CPAP [Concomitant]
     Active Substance: DEVICE
  3. ESCUTOLOPRAM [Concomitant]
  4. SIMVISTATIN [Concomitant]
     Active Substance: SIMVASTATIN
  5. LANTUS [Concomitant]
     Active Substance: INSULIN GLARGINE
  6. SAM E [Concomitant]
  7. BIOTIN [Concomitant]
     Active Substance: BIOTIN
  8. LD ASPIRIN [Concomitant]
  9. ADVAIR HFA [Concomitant]
     Active Substance: FLUTICASONE PROPIONATE\SALMETEROL XINAFOATE
  10. ZINC. [Concomitant]
     Active Substance: ZINC
  11. LISIONOPRIL [Concomitant]
     Active Substance: LISINOPRIL
  12. NOVOLOG [Concomitant]
     Active Substance: INSULIN ASPART
  13. METFORMIN [Concomitant]
     Active Substance: METFORMIN HYDROCHLORIDE
  14. VICTOZA [Concomitant]
     Active Substance: LIRAGLUTIDE
  15. TRIAM/HCTZ [Concomitant]
     Active Substance: HYDROCHLOROTHIAZIDE\TRIAMTERENE
  16. VITAMIN 50+ [Concomitant]
  17. ZYRTEC (GENERIC) [Concomitant]
  18. FIBER ADVANCE GUMMIES [Concomitant]
  19. FLUTICASONE PROPIONATE AND SALMETEROL DISKUS [Suspect]
     Active Substance: FLUTICASONE PROPIONATE\SALMETEROL XINAFOATE
     Indication: ASTHMA
     Dosage: ?          OTHER STRENGTH:MCG;QUANTITY:1 INHALATION(S);?
     Route: 055
  20. GLIPIZIDE. [Concomitant]
     Active Substance: GLIPIZIDE
  21. CALCIUM [Concomitant]
     Active Substance: CALCIUM

REACTIONS (2)
  - Candida infection [None]
  - Product substitution issue [None]

NARRATIVE: CASE EVENT DATE: 20200303
